FAERS Safety Report 7597624-X (Version None)
Quarter: 2011Q3

REPORT INFORMATION
  Report Type: 
  Country: None (occurrence: None)
  Receive Date: 20110708
  Receipt Date: 20110628
  Transmission Date: 20111222
  Serious: Yes (Death)
  Sender: FDA-Public Use
  Company Number: DE-ROCHE-787337

PATIENT
  Age: 23 Year
  Sex: Male

DRUGS (1)
  1. ISOTRETINOIN [Suspect]
     Route: 048
     Dates: start: 19980101, end: 20041201

REACTIONS (2)
  - DEPRESSION [None]
  - COMPLETED SUICIDE [None]
